FAERS Safety Report 22970316 (Version 2)
Quarter: 2023Q4

REPORT INFORMATION
  Report Type: Spontaneous
  Country: NL (occurrence: NL)
  Receive Date: 20230922
  Receipt Date: 20231006
  Transmission Date: 20240110
  Serious: Yes (Life-Threatening)
  Sender: FDA-Public Use
  Company Number: None

PATIENT
  Age: 77 Year
  Sex: Male
  Weight: 80 kg

DRUGS (2)
  1. LABETALOL [Suspect]
     Active Substance: LABETALOL\LABETALOL HYDROCHLORIDE
     Indication: Hypertension
     Dosage: 1 X PER DAY IF NECESSARY, LABETALOL TABLET 100MG / BRAND NAME NOT SPECIFIED
     Dates: start: 20230503, end: 20230829
  2. LOSARTAN [Concomitant]
     Active Substance: LOSARTAN
     Indication: Product used for unknown indication
     Dosage: LOSARTAN TABLET FO  50MG / BRAND NAME NOT SPECIFIED

REACTIONS (7)
  - Cyanosis [Unknown]
  - Pulse absent [Recovered/Resolved]
  - Hypotension [Recovering/Resolving]
  - Loss of consciousness [Recovering/Resolving]
  - Rhinorrhoea [Recovered/Resolved]
  - Oral discharge [Recovered/Resolved]
  - Urinary incontinence [Recovered/Resolved]
